FAERS Safety Report 9557483 (Version 1)
Quarter: 2013Q3

REPORT INFORMATION
  Report Type: Spontaneous
  Country: US (occurrence: None)
  Receive Date: 20130726
  Receipt Date: 20130726
  Transmission Date: 20140515
  Serious: Yes (Hospitalization)
  Sender: FDA-Public Use
  Company Number: UTC-019913

PATIENT
  Age: 34 Year
  Sex: Female
  Weight: 64.5 kg

DRUGS (4)
  1. REVLIMID (LENALIDOMIDE) (2.5 MILLIGRAM, CAPSULES) [Suspect]
     Indication: PULMONARY ARTERIAL HYPERTENSION
     Dates: start: 20110130
  2. COUMADIN (WARFARIN SODIUM) [Concomitant]
  3. REVATIO (SILDENAFIL CITRATE) [Concomitant]
  4. TRACLEER (BOSENTAN) [Concomitant]

REACTIONS (3)
  - Device related infection [None]
  - Dermatitis contact [None]
  - Staphylococcal infection [None]
